FAERS Safety Report 22361290 (Version 3)
Quarter: 2023Q2

REPORT INFORMATION
  Report Type: Spontaneous
  Country: US (occurrence: US)
  Receive Date: 20230524
  Receipt Date: 20230621
  Transmission Date: 20230722
  Serious: Yes (Death, Other)
  Sender: FDA-Public Use
  Company Number: US-SA-SAC20230524000803

PATIENT
  Age: 84 Year
  Sex: Female

DRUGS (1)
  1. DUPIXENT [Suspect]
     Active Substance: DUPILUMAB
     Indication: Dermatitis atopic
     Dosage: 300 MG, QOW
     Route: 058
     Dates: start: 20230307, end: 2023

REACTIONS (4)
  - Death [Fatal]
  - Hip fracture [Unknown]
  - Asthenia [Unknown]
  - Fall [Unknown]

NARRATIVE: CASE EVENT DATE: 20230506
